FAERS Safety Report 9626952 (Version 1)
Quarter: 2013Q4

REPORT INFORMATION
  Report Type: Spontaneous
  Country: US (occurrence: US)
  Receive Date: 20131016
  Receipt Date: 20131016
  Transmission Date: 20140711
  Serious: Yes (Hospitalization)
  Sender: FDA-Public Use
  Company Number: US-BAYER-2013-124092

PATIENT
  Age: 6 Day
  Sex: Male
  Weight: 4.4 kg

DRUGS (1)
  1. CALCIUM CARBONATE [Suspect]
     Route: 064

REACTIONS (6)
  - Hypocalcaemia [Recovered/Resolved]
  - Convulsion neonatal [Recovered/Resolved]
  - Hypomagnesaemia [Recovered/Resolved]
  - Hyperphosphataemia [Recovered/Resolved]
  - Hypoparathyroidism [Recovered/Resolved]
  - Foetal exposure during pregnancy [None]
